FAERS Safety Report 25154377 (Version 2)
Quarter: 2025Q2

REPORT INFORMATION
  Report Type: Spontaneous
  Country: US (occurrence: US)
  Receive Date: 20250403
  Receipt Date: 20250607
  Transmission Date: 20250716
  Serious: No
  Sender: STEMLINE THERAPEUTICS
  Company Number: US-STEMLINE THERAPEUTICS B.V.-2025-STML-US000754

PATIENT

DRUGS (1)
  1. ORSERDU [Suspect]
     Active Substance: ELACESTRANT
     Indication: Intraductal proliferative breast lesion
     Dosage: 345 MG, DAILY
     Route: 048

REACTIONS (3)
  - Periorbital oedema [Recovered/Resolved]
  - Rash [Recovered/Resolved]
  - Off label use [Unknown]
